FAERS Safety Report 6147153-5 (Version None)
Quarter: 2009Q2

REPORT INFORMATION
  Report Type: 
  Country: None (occurrence: None)
  Receive Date: 20090406
  Receipt Date: 20090330
  Transmission Date: 20091009
  Serious: Yes (Other)
  Sender: FDA-Public Use
  Company Number: ADR1092009

PATIENT
  Age: 71 Year
  Sex: Male

DRUGS (5)
  1. RAMIPRIL [Suspect]
  2. METOPROLOL SUCCINATE [Concomitant]
  3. LIPITOR [Concomitant]
  4. HYDROCHLOROTHIAZIDE [Concomitant]
  5. POTASSIUM CHLORIDE [Concomitant]

REACTIONS (1)
  - TENDONITIS [None]
